FAERS Safety Report 8982938 (Version 1)
Quarter: 2012Q4

REPORT INFORMATION
  Report Type: 
  Country: US (occurrence: US)
  Receive Date: 20121224
  Receipt Date: 20121224
  Transmission Date: 20130627
  Serious: Yes (Other)
  Sender: FDA-Public Use
  Company Number: US-ELI_LILLY_AND_COMPANY-US201212006955

PATIENT
  Age: 40 Year
  Sex: Male

DRUGS (2)
  1. FORTEO [Suspect]
     Indication: OSTEOPOROSIS
     Dosage: 20 ug, qd
     Dates: start: 200412, end: 200612
  2. ALENDRONATE [Concomitant]
     Indication: OSTEOPOROSIS
     Dosage: UNK UNK, qd
     Dates: start: 200612, end: 201212

REACTIONS (1)
  - Atypical femur fracture [Unknown]
